APPROVED DRUG PRODUCT: BENZONATATE
Active Ingredient: BENZONATATE
Strength: 100MG
Dosage Form/Route: CAPSULE;ORAL
Application: A091310 | Product #001
Applicant: ACELLA PHARMACEUTICALS LLC
Approved: Jan 16, 2015 | RLD: No | RS: No | Type: DISCN